FAERS Safety Report 9197591 (Version 2)
Quarter: 2013Q2

REPORT INFORMATION
  Report Type: Spontaneous
  Country: SE (occurrence: SE)
  Receive Date: 20130328
  Receipt Date: 20130412
  Transmission Date: 20140414
  Serious: Yes (Hospitalization)
  Sender: FDA-Public Use
  Company Number: SE-GLAXOSMITHKLINE-B0878323A

PATIENT
  Sex: Female

DRUGS (5)
  1. NEOTIGASON [Suspect]
     Indication: PSORIASIS
     Dosage: 10MG PER DAY
     Route: 048
  2. CORTISONE [Concomitant]
     Dosage: 1.25MG PER DAY
     Route: 065
  3. VITAMIN D [Concomitant]
     Route: 065
  4. SOLVEZINK [Concomitant]
     Route: 065
  5. ECHINAGARD [Concomitant]

REACTIONS (2)
  - Nasal congestion [Unknown]
  - Headache [Recovered/Resolved]
